FAERS Safety Report 9060872 (Version 2)
Quarter: 2013Q1

REPORT INFORMATION
  Report Type: Report from Study
  Country: CN (occurrence: CN)
  Receive Date: 20130128
  Receipt Date: 20130128
  Transmission Date: 20140127
  Serious: Yes (Hospitalization)
  Sender: FDA-Public Use
  Company Number: CN-GE HEALTHCARE MEDICAL DIAGNOSTICS-VISP-NO-1108S-0295

PATIENT
  Age: 63 None
  Sex: Male

DRUGS (3)
  1. VISIPAQUE [Suspect]
     Indication: CORONARY ARTERY DISEASE
     Route: 042
     Dates: start: 20110720, end: 20110720
  2. VISIPAQUE [Suspect]
     Indication: DIAGNOSTIC PROCEDURE
  3. BETA-2 RECEPTOR BLOCKER UNSPECIFIED [Concomitant]

REACTIONS (2)
  - Gastrointestinal haemorrhage [Recovered/Resolved]
  - Hypotension [Recovered/Resolved]
